APPROVED DRUG PRODUCT: POTASSIUM CITRATE
Active Ingredient: POTASSIUM CITRATE
Strength: 15MEQ
Dosage Form/Route: TABLET, EXTENDED RELEASE;ORAL
Application: A214426 | Product #003 | TE Code: AB
Applicant: HIBROW HEALTHCARE PRIVATE LTD
Approved: Feb 19, 2021 | RLD: No | RS: No | Type: RX